FAERS Safety Report 9471526 (Version 1)
Quarter: 2013Q3

REPORT INFORMATION
  Report Type: Spontaneous
  Country: FR (occurrence: None)
  Receive Date: 20130819
  Receipt Date: 20130819
  Transmission Date: 20140515
  Serious: Yes (Hospitalization)
  Sender: FDA-Public Use
  Company Number: ENTC2013-0293

PATIENT
  Age: 45 Year
  Sex: Male

DRUGS (3)
  1. STALEVO [Suspect]
     Indication: PARKINSON^S DISEASE
     Dosage: STRENGTH: 100/25/200 MG (4 DOSAGE FORMS, 1 IN 1 D), ORAL
     Route: 048
     Dates: start: 201212, end: 20130512
  2. SIFROL [Concomitant]
  3. AZILECT [Concomitant]

REACTIONS (4)
  - Shock haemorrhagic [None]
  - Anaemia [None]
  - Mallory-Weiss syndrome [None]
  - Haemorrhagic erosive gastritis [None]
